FAERS Safety Report 12011151 (Version 1)
Quarter: 2016Q1

REPORT INFORMATION
  Report Type: Report from Study
  Country: CA (occurrence: CA)
  Receive Date: 20160205
  Receipt Date: 20160205
  Transmission Date: 20160526
  Serious: Yes (Other)
  Sender: FDA-Public Use
  Company Number: PHHY2015CA153378

PATIENT
  Age: 66 Year
  Sex: Female

DRUGS (2)
  1. SANDOSTATIN LAR DEPOT [Suspect]
     Active Substance: OCTREOTIDE ACETATE
     Indication: METASTATIC CARCINOID TUMOUR
     Dosage: 30 MG, QMO (EVERY 4 WEEKS)
     Route: 030
     Dates: start: 20121001
  2. TELMISARTAN HCTZ [Concomitant]
     Active Substance: HYDROCHLOROTHIAZIDE\TELMISARTAN
     Indication: PRODUCT USED FOR UNKNOWN INDICATION
     Dosage: UNK
     Route: 065

REACTIONS (10)
  - Blood pressure decreased [Unknown]
  - Ligament sprain [Unknown]
  - Pain [Unknown]
  - Arthralgia [Unknown]
  - Groin pain [Unknown]
  - Inguinal hernia [Unknown]
  - Lymph nodes scan abnormal [Unknown]
  - Wrong technique in product usage process [Unknown]
  - Fall [Unknown]
  - Tendon disorder [Unknown]

NARRATIVE: CASE EVENT DATE: 20151006
